FAERS Safety Report 4821565-1 (Version None)
Quarter: 2005Q4

REPORT INFORMATION
  Report Type: 
  Country: None (occurrence: None)
  Receive Date: 20051103
  Receipt Date: 20051020
  Transmission Date: 20060501
  Serious: Yes (Death, Hospitalization, Other)
  Sender: FDA-Public Use
  Company Number: 21627

PATIENT
  Age: 53 Year
  Sex: Female

DRUGS (1)
  1. CISPLATIN [Suspect]
     Indication: NEOPLASM MALIGNANT
     Dosage: 100MG/M2 CYC IV
     Route: 042

REACTIONS (12)
  - ACTIVITIES OF DAILY LIVING IMPAIRED [None]
  - ANOREXIA [None]
  - BLOOD PRESSURE IMMEASURABLE [None]
  - DEHYDRATION [None]
  - DYSPHAGIA [None]
  - DYSPHASIA [None]
  - HYPOKALAEMIA [None]
  - LEUKOPENIA [None]
  - MALIGNANT NEOPLASM PROGRESSION [None]
  - NAUSEA [None]
  - NEUTROPENIA [None]
  - SQUAMOUS CELL CARCINOMA [None]
